FAERS Safety Report 21930648 (Version 1)
Quarter: 2023Q1

REPORT INFORMATION
  Report Type: Report from Study
  Country: US (occurrence: US)
  Receive Date: 20230131
  Receipt Date: 20230131
  Transmission Date: 20230417
  Serious: Yes (Other)
  Sender: FDA-Public Use
  Company Number: US-TEVA-2023-US-2850030

PATIENT
  Age: 54 Year
  Sex: Female
  Weight: 42 kg

DRUGS (4)
  1. LISINOPRIL [Suspect]
     Active Substance: LISINOPRIL
     Indication: Product used for unknown indication
     Route: 065
  2. TYVASO [Suspect]
     Active Substance: TREPROSTINIL
     Indication: Pulmonary arterial hypertension
     Dosage: 216 MICROGRAM DAILY; 0.6 MG/ML
     Route: 065
  3. TYVASO [Suspect]
     Active Substance: TREPROSTINIL
     Route: 065
     Dates: start: 20200206
  4. SILDENAFIL CITRATE [Concomitant]
     Active Substance: SILDENAFIL CITRATE
     Indication: Product used for unknown indication

REACTIONS (4)
  - Loss of consciousness [Unknown]
  - Infected fistula [Unknown]
  - Staphylococcal infection [Unknown]
  - Hypotension [Unknown]
